FAERS Safety Report 6060835-9 (Version None)
Quarter: 2009Q1

REPORT INFORMATION
  Report Type: 
  Country: None (occurrence: None)
  Receive Date: 20090202
  Receipt Date: 20081231
  Transmission Date: 20090719
  Serious: No
  Sender: FDA-Public Use
  Company Number: US-BAYER-200910016NA

PATIENT
  Age: 19 Year
  Sex: Female

DRUGS (2)
  1. YAZ [Suspect]
     Indication: MENORRHAGIA
     Route: 048
     Dates: start: 20071201, end: 20081218
  2. YASMIN [Suspect]
     Route: 048
     Dates: end: 20071201

REACTIONS (5)
  - ABNORMAL WITHDRAWAL BLEEDING [None]
  - ACNE [None]
  - DIZZINESS [None]
  - NAUSEA [None]
  - NO ADVERSE EVENT [None]
